FAERS Safety Report 5728747-5 (Version None)
Quarter: 2008Q2

REPORT INFORMATION
  Report Type: 
  Country: None (occurrence: None)
  Receive Date: 20080506
  Receipt Date: 20080502
  Transmission Date: 20081010
  Serious: Yes (Hospitalization)
  Sender: FDA-Public Use
  Company Number: A0726395A

PATIENT

DRUGS (2)
  1. ARIXTRA [Suspect]
     Indication: DRUG USE FOR UNKNOWN INDICATION
     Dosage: 2.5MG UNKNOWN
  2. TORADOL [Concomitant]

REACTIONS (2)
  - HAEMORRHAGE [None]
  - PARACENTESIS ABDOMEN ABNORMAL [None]
